FAERS Safety Report 4786044-9 (Version None)
Quarter: 2005Q3

REPORT INFORMATION
  Report Type: 
  Country: None (occurrence: None)
  Receive Date: 20050930
  Receipt Date: 20050920
  Transmission Date: 20060218
  Serious: Yes (Other)
  Sender: FDA-Public Use
  Company Number: 2005132313

PATIENT
  Age: 53 Year
  Sex: Male

DRUGS (3)
  1. VFEND [Suspect]
     Indication: CRYPTOCOCCOSIS
     Dosage: 6 MG/KG (DAILY), INTRAVENOUS
     Route: 042
     Dates: start: 20050916, end: 20050918
  2. PRODIF (FOSFLUCONAZOLE) [Concomitant]
  3. FUNGIZONE [Concomitant]

REACTIONS (4)
  - DISEASE RECURRENCE [None]
  - HAEMATURIA [None]
  - MOUTH HAEMORRHAGE [None]
  - PYREXIA [None]
